FAERS Safety Report 8825879 (Version 1)
Quarter: 2012Q4

REPORT INFORMATION
  Report Type: 
  Country: US (occurrence: US)
  Receive Date: 20121005
  Receipt Date: 20121005
  Transmission Date: 20130627
  Serious: Yes (Other)
  Sender: FDA-Public Use
  Company Number: US-ROCHE-1130864

PATIENT
  Age: 72 Year
  Sex: Female

DRUGS (5)
  1. RITUXAN [Suspect]
     Indication: LYMPHOMA
     Route: 042
     Dates: start: 20010420
  2. RITUXAN [Suspect]
     Indication: OFF LABEL USE
  3. BENADRYL [Concomitant]
     Route: 042
  4. TYLENOL [Concomitant]
     Route: 048
  5. PROCRIT [Concomitant]
     Dosage: 20,000 units
     Route: 065

REACTIONS (3)
  - Idiopathic thrombocytopenic purpura [Unknown]
  - Fatigue [Unknown]
  - Oedema peripheral [Unknown]
